FAERS Safety Report 9132875 (Version 2)
Quarter: 2013Q1

REPORT INFORMATION
  Report Type: Spontaneous
  Country: US (occurrence: US)
  Receive Date: 20130128
  Receipt Date: 20130307
  Transmission Date: 20140127
  Serious: No
  Sender: FDA-Public Use
  Company Number: US-B.I. PHARMACEUTICALS,INC./RIDGEFIELD-2013-BI-00266BP

PATIENT
  Age: 58 Year
  Sex: Female
  Weight: 87 kg

DRUGS (34)
  1. SPIRIVA [Suspect]
     Indication: CHRONIC OBSTRUCTIVE PULMONARY DISEASE
     Dosage: 18 MCG
     Route: 055
     Dates: start: 201202, end: 201212
  2. PERSANTINE [Suspect]
     Dosage: 200 MG
     Route: 048
  3. ALBUTEROL [Concomitant]
     Route: 055
  4. POTASSIUM [Concomitant]
     Route: 048
  5. LORAZEPAM [Concomitant]
     Indication: ANXIETY
     Route: 048
  6. RESTASIS [Concomitant]
  7. AMITIZA [Concomitant]
     Indication: IRRITABLE BOWEL SYNDROME
     Route: 048
  8. ASPIRIN [Concomitant]
     Dosage: 81 MG
     Route: 048
  9. PRILOSEC [Concomitant]
     Indication: GASTROOESOPHAGEAL REFLUX DISEASE
     Route: 048
  10. PROAIR [Concomitant]
     Route: 055
  11. VITAMIN D3 [Concomitant]
     Route: 048
  12. LIDODERM PATCH [Concomitant]
     Indication: INTERVERTEBRAL DISC PROTRUSION
     Route: 061
  13. REMERON [Concomitant]
     Indication: INSOMNIA
     Route: 048
  14. SINGULAIR [Concomitant]
     Route: 048
  15. VITAMIN C PLUS IRON [Concomitant]
     Route: 048
  16. VICODIN [Concomitant]
     Route: 048
  17. BUDESONIDE [Concomitant]
     Route: 055
  18. ESTRADIOL [Concomitant]
     Route: 048
  19. FOLIC ACID [Concomitant]
     Route: 048
  20. FROVA [Concomitant]
     Indication: MIGRAINE
     Route: 048
  21. PERFORMIST [Concomitant]
     Indication: ASTHMA
     Route: 055
  22. PYCNOGENOL COMPLEX [Concomitant]
     Indication: BREAST CYST
     Route: 048
  23. CYMBALTA [Concomitant]
     Indication: DEPRESSION
     Route: 048
  24. HORIZANT [Concomitant]
     Indication: RESTLESS LEGS SYNDROME
     Route: 048
  25. LUTEIN [Concomitant]
     Route: 048
  26. LYRICA [Concomitant]
     Route: 048
  27. METOPROLOL [Concomitant]
     Indication: HYPERTENSION
     Route: 048
  28. SYNTHROID [Concomitant]
     Indication: HYPOTHYROIDISM
     Route: 048
  29. LOVAZA [Concomitant]
     Indication: BLOOD TRIGLYCERIDES INCREASED
     Route: 048
  30. METHOTREXATE [Concomitant]
     Indication: RHEUMATOID ARTHRITIS
     Route: 048
  31. PROBIOTIC [Concomitant]
     Route: 048
  32. ZINC [Concomitant]
     Route: 048
  33. LASIX [Concomitant]
     Route: 048
  34. METFORMIN [Concomitant]
     Indication: DIABETES MELLITUS
     Route: 048

REACTIONS (5)
  - Bronchitis [Not Recovered/Not Resolved]
  - Laryngitis [Not Recovered/Not Resolved]
  - Product quality issue [Recovered/Resolved]
  - Product quality issue [Recovered/Resolved]
  - Sinusitis [Unknown]
